FAERS Safety Report 5562403-1 (Version None)
Quarter: 2007Q4

REPORT INFORMATION
  Report Type: 
  Country: None (occurrence: None)
  Receive Date: 20071215
  Receipt Date: 20070521
  Transmission Date: 20080405
  Serious: No
  Sender: FDA-Public Use
  Company Number: US-AMGEN-STX219437

PATIENT
  Sex: Female
  Weight: 108.1 kg

DRUGS (4)
  1. ENBREL [Suspect]
     Indication: PSORIASIS
     Route: 058
     Dates: start: 20070131, end: 20070220
  2. DOVONEX [Concomitant]
     Route: 065
     Dates: start: 20050920
  3. DOXYCYCLINE [Concomitant]
     Route: 065
     Dates: start: 20060911
  4. BIOTIN [Concomitant]
     Route: 065
     Dates: start: 20061011

REACTIONS (4)
  - CHROMATURIA [None]
  - JOINT SWELLING [None]
  - MALAISE [None]
  - PSORIASIS [None]
